FAERS Safety Report 13162349 (Version 3)
Quarter: 2018Q1

REPORT INFORMATION
  Report Type: Report from Study
  Country: AR (occurrence: AR)
  Receive Date: 20170130
  Receipt Date: 20180307
  Transmission Date: 20180508
  Serious: Yes (Hospitalization, Other)
  Sender: FDA-Public Use
  Company Number: PHHY2017AR012530

PATIENT
  Sex: Female

DRUGS (1)
  1. DIOVAN [Suspect]
     Active Substance: VALSARTAN
     Indication: HYPERTENSION
     Dosage: 2 DF, QD (3 TO 4 YEARS AGO)
     Route: 065

REACTIONS (3)
  - Throat irritation [Recovered/Resolved]
  - Laryngeal cancer [Unknown]
  - Aspiration [Recovered/Resolved]
